FAERS Safety Report 16227017 (Version 7)
Quarter: 2022Q4

REPORT INFORMATION
  Report Type: Other
  Country: CA (occurrence: CA)
  Receive Date: 20190423
  Receipt Date: 20221028
  Transmission Date: 20230113
  Serious: Yes (Hospitalization, Other)
  Sender: FDA-Public Use
  Company Number: E2B_01791102

PATIENT
  Age: 52 Year
  Sex: Female

DRUGS (85)
  1. OLANZAPINE [Suspect]
     Active Substance: OLANZAPINE
     Indication: Psychotic disorder
     Dosage: 5 MG, QD
     Route: 048
  2. OLANZAPINE [Suspect]
     Active Substance: OLANZAPINE
     Indication: Musculoskeletal stiffness
     Dosage: 12.5 MG, QD
     Route: 048
  3. ACETAMINOPHEN [Suspect]
     Active Substance: ACETAMINOPHEN
     Indication: Pain in extremity
     Dosage: 650 MG, PRN
     Route: 048
  4. CLONAZEPAM [Suspect]
     Active Substance: CLONAZEPAM
     Indication: Hypomania
     Dosage: 3 MG, QD
     Route: 048
  5. CLONAZEPAM [Suspect]
     Active Substance: CLONAZEPAM
     Dosage: 3 UNK
     Route: 065
  6. DIAZEPAM [Suspect]
     Active Substance: DIAZEPAM
     Indication: Depression
     Dosage: 250 MG, BID
     Route: 048
  7. DIAZEPAM [Suspect]
     Active Substance: DIAZEPAM
     Dosage: 1500 MG, QD
     Route: 048
  8. DIAZEPAM [Suspect]
     Active Substance: DIAZEPAM
     Dosage: 2750 MG, UNK
     Route: 048
  9. DIAZEPAM [Suspect]
     Active Substance: DIAZEPAM
     Dosage: 2750 MG, UNK
     Route: 065
  10. DIAZEPAM [Suspect]
     Active Substance: DIAZEPAM
     Dosage: 250 MG, BID
     Route: 065
  11. DIAZEPAM [Suspect]
     Active Substance: DIAZEPAM
     Dosage: 1500 MG, QD
     Route: 065
  12. DIAZEPAM [Suspect]
     Active Substance: DIAZEPAM
     Dosage: 500 MILLIGRAM, QD
     Route: 048
  13. QUETIAPINE [Suspect]
     Active Substance: QUETIAPINE
     Indication: Psychotic disorder
     Dosage: 50 MG, QD
     Route: 048
  14. QUETIAPINE [Suspect]
     Active Substance: QUETIAPINE
     Dosage: 50 MG, QD
     Route: 048
  15. RISPERIDONE [Suspect]
     Active Substance: RISPERIDONE
     Indication: Psychotic disorder
     Dosage: 3 MG, QD
     Route: 048
  16. TRAZODONE [Suspect]
     Active Substance: TRAZODONE HYDROCHLORIDE
     Indication: Depression
     Dosage: 50 MILLIGRAM, BID
     Route: 048
  17. TRAZODONE [Suspect]
     Active Substance: TRAZODONE HYDROCHLORIDE
     Dosage: 50 MILLIGRAM, QD
     Route: 048
  18. TRAZODONE [Suspect]
     Active Substance: TRAZODONE HYDROCHLORIDE
     Dosage: 50 MILLIGRAM, QD
     Route: 048
  19. DIVALPROEX SODIUM [Suspect]
     Active Substance: DIVALPROEX SODIUM
     Indication: Product used for unknown indication
     Dosage: 2750 MILLIGRAM
     Route: 065
  20. DIVALPROEX SODIUM [Suspect]
     Active Substance: DIVALPROEX SODIUM
     Dosage: 250 MILLIGRAM, BID
     Route: 065
  21. DIVALPROEX SODIUM [Suspect]
     Active Substance: DIVALPROEX SODIUM
     Dosage: 1500 MILLIGRAM, QD
     Route: 065
  22. DIVALPROEX SODIUM [Suspect]
     Active Substance: DIVALPROEX SODIUM
     Dosage: 1500 MILLIGRAM, QD
     Route: 065
  23. AZITHROMYCIN [Suspect]
     Active Substance: AZITHROMYCIN
     Indication: Product used for unknown indication
     Dosage: UNK
     Route: 065
  24. MOXIFLOXACIN [Suspect]
     Active Substance: MOXIFLOXACIN
     Indication: Product used for unknown indication
     Dosage: UNK
     Route: 065
  25. PREDNISONE [Suspect]
     Active Substance: PREDNISONE
     Indication: Product used for unknown indication
     Dosage: UNK
     Route: 065
  26. ALBUTEROL [Suspect]
     Active Substance: ALBUTEROL
     Indication: Product used for unknown indication
     Dosage: 400 MILLIGRAM
     Route: 065
  27. CIPROFLOXACIN [Suspect]
     Active Substance: CIPROFLOXACIN
     Indication: Product used for unknown indication
     Dosage: UNK
     Route: 065
  28. PROCYCLIDINE [Suspect]
     Active Substance: PROCYCLIDINE
     Indication: Prophylaxis
     Dosage: 2.5 MILLIGRAM, QD
     Route: 048
  29. APTIVUS [Suspect]
     Active Substance: TIPRANAVIR
     Indication: HIV infection
     Dosage: 500 MG, QD
     Route: 048
  30. APTIVUS [Suspect]
     Active Substance: TIPRANAVIR
     Dosage: 650 MILLIGRAM, QD
     Route: 048
  31. TEGRETOL [Suspect]
     Active Substance: CARBAMAZEPINE
     Indication: Hypomania
     Dosage: 200 MG, BID
     Route: 048
  32. TEGRETOL [Suspect]
     Active Substance: CARBAMAZEPINE
     Dosage: 400 MILLIGRAM, QD
     Route: 065
  33. TIPRANAVIR [Suspect]
     Active Substance: TIPRANAVIR
     Indication: Product used for unknown indication
     Dosage: 500 MILLIGRAM, QD
     Route: 048
  34. BUDESONIDE\FORMOTEROL FUMARATE [Suspect]
     Active Substance: BUDESONIDE\FORMOTEROL FUMARATE
     Indication: Product used for unknown indication
     Dosage: UNK
     Route: 065
  35. ATROVENT [Suspect]
     Active Substance: IPRATROPIUM BROMIDE
     Indication: Product used for unknown indication
     Dosage: UNK
     Route: 065
  36. ACLIDINIUM BROMIDE\FORMOTEROL FUMARATE [Suspect]
     Active Substance: ACLIDINIUM BROMIDE\FORMOTEROL FUMARATE
     Indication: Product used for unknown indication
     Dosage: UNK
     Route: 065
  37. NUCALA [Suspect]
     Active Substance: MEPOLIZUMAB
     Indication: Product used for unknown indication
     Dosage: 100 MILLIGRAM
     Route: 065
  38. FORMOTEROL FUMARATE\MOMETASONE FUROATE [Suspect]
     Active Substance: FORMOTEROL FUMARATE\MOMETASONE FUROATE
     Indication: Product used for unknown indication
     Dosage: UNK
     Route: 065
  39. NASONEX [Suspect]
     Active Substance: MOMETASONE FUROATE
     Indication: Product used for unknown indication
     Dosage: UNK
     Route: 045
  40. GLYCOPYRROLATE [Suspect]
     Active Substance: GLYCOPYRROLATE
     Indication: Product used for unknown indication
     Dosage: UNK
     Route: 065
  41. OLODATEROL HYDROCHLORIDE\TIOTROPIUM BROMIDE MONOHYDRATE [Suspect]
     Active Substance: OLODATEROL HYDROCHLORIDE\TIOTROPIUM BROMIDE MONOHYDRATE
     Indication: Product used for unknown indication
     Dosage: UNK
     Route: 065
  42. SEROQUEL [Suspect]
     Active Substance: QUETIAPINE FUMARATE
     Indication: Product used for unknown indication
     Dosage: 50 MILLIGRAM, QD
     Route: 048
  43. MEPOLIZUMAB [Suspect]
     Active Substance: MEPOLIZUMAB
     Indication: Product used for unknown indication
     Dosage: UNK
     Route: 065
  44. OMNARIS [Suspect]
     Active Substance: CICLESONIDE
     Indication: Product used for unknown indication
     Dosage: UNK
     Route: 065
  45. ANORO ELLIPTA [Suspect]
     Active Substance: UMECLIDINIUM BROMIDE\VILANTEROL TRIFENATATE
     Indication: Product used for unknown indication
     Dosage: UNK
     Route: 065
  46. UMECLIDINIUM BROMIDE\VILANTEROL TRIFENATATE [Suspect]
     Active Substance: UMECLIDINIUM BROMIDE\VILANTEROL TRIFENATATE
     Indication: Product used for unknown indication
     Dosage: UNK
     Route: 065
  47. ZENHALE [Suspect]
     Active Substance: FORMOTEROL FUMARATE\MOMETASONE FUROATE
     Indication: Product used for unknown indication
     Dosage: UNK
     Route: 065
  48. INDACATEROL MALEATE [Suspect]
     Active Substance: INDACATEROL MALEATE
     Indication: Product used for unknown indication
     Dosage: UNK
     Route: 065
  49. ACLIDINIUM BROMIDE\FORMOTEROL FUMARATE [Suspect]
     Active Substance: ACLIDINIUM BROMIDE\FORMOTEROL FUMARATE
     Indication: Product used for unknown indication
     Dosage: UNK
     Route: 065
  50. UMECLIDINIUM BROMIDE [Suspect]
     Active Substance: UMECLIDINIUM BROMIDE
     Indication: Product used for unknown indication
     Dosage: UNK
     Route: 065
  51. ZYPREXA [Suspect]
     Active Substance: OLANZAPINE
     Indication: Psychotic disorder
     Dosage: 5 MILLIGRAM, QD
     Route: 048
  52. ZYPREXA [Suspect]
     Active Substance: OLANZAPINE
     Dosage: 12.5 MILLIGRAM, QD
     Route: 048
  53. SINGULAIR [Suspect]
     Active Substance: MONTELUKAST SODIUM
     Indication: Product used for unknown indication
     Dosage: UNK
     Route: 065
  54. SPIRIVA [Suspect]
     Active Substance: TIOTROPIUM BROMIDE MONOHYDRATE
     Indication: Product used for unknown indication
     Dosage: UNK
     Route: 065
  55. OLODATEROL HYDROCHLORIDE\TIOTROPIUM BROMIDE MONOHYDRATE [Suspect]
     Active Substance: OLODATEROL HYDROCHLORIDE\TIOTROPIUM BROMIDE MONOHYDRATE
     Indication: Product used for unknown indication
     Dosage: UNK
     Route: 065
  56. DIAZEPAM [Suspect]
     Active Substance: DIAZEPAM
     Indication: Product used for unknown indication
     Dosage: 500 MILLIGRAM, QD
     Route: 048
  57. DIAZEPAM [Suspect]
     Active Substance: DIAZEPAM
     Dosage: 2750 MILLIGRAM
     Route: 065
  58. DIAZEPAM [Suspect]
     Active Substance: DIAZEPAM
     Dosage: 1500 MILLIGRAM, QD
     Route: 048
  59. BREO ELLIPTA [Suspect]
     Active Substance: FLUTICASONE FUROATE\VILANTEROL TRIFENATATE
     Indication: Product used for unknown indication
     Dosage: UNK
     Route: 065
  60. ACLIDINIUM BROMIDE [Suspect]
     Active Substance: ACLIDINIUM BROMIDE
     Indication: Product used for unknown indication
     Dosage: UNK
     Route: 065
  61. LITHIUM [Concomitant]
     Active Substance: LITHIUM
     Indication: Product used for unknown indication
     Dosage: UNK
     Route: 065
  62. KALETRA [Concomitant]
     Active Substance: LOPINAVIR\RITONAVIR
     Indication: Product used for unknown indication
     Dosage: UNK
     Route: 065
  63. LACTULOSE [Concomitant]
     Active Substance: LACTULOSE
     Indication: Product used for unknown indication
     Dosage: UNK
     Route: 065
  64. IMODIUM [Concomitant]
     Active Substance: LOPERAMIDE HYDROCHLORIDE
     Indication: Product used for unknown indication
     Route: 065
  65. BISACODYL [Concomitant]
     Active Substance: BISACODYL
     Indication: Product used for unknown indication
     Dosage: UNK
     Route: 065
  66. NYSTATIN [Concomitant]
     Active Substance: NYSTATIN
     Indication: Product used for unknown indication
     Route: 065
  67. PROCYCLIDINE HYDROCHLORIDE [Concomitant]
     Active Substance: PROCYCLIDINE HYDROCHLORIDE
     Indication: Prophylaxis
     Dosage: 2.5 MG, QD
     Route: 048
  68. PROCYCLIDINE HYDROCHLORIDE [Concomitant]
     Active Substance: PROCYCLIDINE HYDROCHLORIDE
     Indication: Musculoskeletal stiffness
  69. LAMIVUDINE [Concomitant]
     Active Substance: LAMIVUDINE
     Indication: Product used for unknown indication
     Dosage: UNK
     Route: 016
  70. BENADRYL [Concomitant]
     Active Substance: DIPHENHYDRAMINE HYDROCHLORIDE
     Indication: Product used for unknown indication
     Dosage: UNK
     Route: 065
  71. ABACAVIR [Concomitant]
     Active Substance: ABACAVIR
     Indication: Product used for unknown indication
     Dosage: UNK
     Route: 065
  72. ATOVAQUONE/PROGUANIL TEVA [Concomitant]
     Indication: Product used for unknown indication
     Dosage: UNK
     Route: 065
  73. LYCOPENE A+ [Concomitant]
     Indication: Product used for unknown indication
     Dosage: UNK
     Route: 065
  74. MINERALS\VITAMINS [Concomitant]
     Active Substance: MINERALS\VITAMINS
     Indication: Product used for unknown indication
     Dosage: UNK
     Route: 065
  75. ENFUVIRTIDE [Concomitant]
     Active Substance: ENFUVIRTIDE
     Indication: Product used for unknown indication
     Dosage: UNK
     Route: 065
  76. ATOVAQUONE AND PROGUANIL HYDROCHLORIDE [Concomitant]
     Active Substance: ATOVAQUONE\PROGUANIL HYDROCHLORIDE
     Indication: Product used for unknown indication
     Dosage: UNK
     Route: 065
  77. SERTRALINE [Concomitant]
     Active Substance: SERTRALINE HYDROCHLORIDE
     Indication: Product used for unknown indication
     Dosage: UNK
     Route: 065
  78. ENFUVIRTIDE [Concomitant]
     Active Substance: ENFUVIRTIDE
     Indication: Product used for unknown indication
     Dosage: UNK
     Route: 065
  79. VITAMINS [Concomitant]
     Active Substance: VITAMINS
     Indication: Product used for unknown indication
     Dosage: UNK
     Route: 065
  80. CHLORAL HYDRATE [Concomitant]
     Active Substance: CHLORAL HYDRATE
     Indication: Product used for unknown indication
     Dosage: UNK
     Route: 065
  81. ACETAMINOPHEN [Concomitant]
     Active Substance: ACETAMINOPHEN
     Indication: Pain in extremity
     Dosage: 650 MILLIGRAM
     Route: 048
  82. VITAMINS NOS [Concomitant]
     Active Substance: VITAMINS
     Indication: Product used for unknown indication
     Dosage: UNK
     Route: 065
  83. ACRIVASTINE [Concomitant]
     Active Substance: ACRIVASTINE
     Indication: Product used for unknown indication
     Dosage: UNK
     Route: 065
  84. APTIVUS [Concomitant]
     Active Substance: TIPRANAVIR
     Indication: HIV infection
     Dosage: 650 MILLIGRAM, QD
     Route: 048
  85. CALCIUM CARBONATE [Concomitant]
     Active Substance: CALCIUM CARBONATE
     Indication: Product used for unknown indication
     Dosage: UNK
     Route: 065

REACTIONS (24)
  - Schizophrenia [Unknown]
  - Psychotic disorder [Unknown]
  - Condition aggravated [Unknown]
  - Hepatic enzyme increased [Unknown]
  - Hepatotoxicity [Unknown]
  - Blood bilirubin increased [Unknown]
  - Jaundice cholestatic [Unknown]
  - Cholelithiasis [Unknown]
  - Pneumonia [Unknown]
  - Hypomania [Unknown]
  - Nausea [Unknown]
  - Vomiting [Unknown]
  - Asthma-chronic obstructive pulmonary disease overlap syndrome [Unknown]
  - Bronchiectasis [Unknown]
  - Cardiac murmur [Unknown]
  - Chronic obstructive pulmonary disease [Unknown]
  - Gastrooesophageal reflux disease [Unknown]
  - Lung neoplasm malignant [Unknown]
  - Nasal polyps [Unknown]
  - Oedema peripheral [Unknown]
  - Rhinitis allergic [Unknown]
  - Sarcoidosis [Unknown]
  - Total lung capacity increased [Unknown]
  - Wheezing [Unknown]
